FAERS Safety Report 4995058-5 (Version None)
Quarter: 2006Q2

REPORT INFORMATION
  Report Type: 
  Country: None (occurrence: None)
  Receive Date: 20060508
  Receipt Date: 20060320
  Transmission Date: 20061013
  Serious: Yes (Death)
  Sender: FDA-Public Use
  Company Number: US-AVENTIS-200612789US

PATIENT
  Age: 34 Year
  Sex: Male

DRUGS (3)
  1. RIFAMPIN [Suspect]
     Indication: TUBERCULOSIS
  2. PYRAZINAMIDE [Suspect]
     Indication: TUBERCULOSIS
  3. UNKNOWN DRUG [Concomitant]
     Dosage: DOSE: UNK

REACTIONS (4)
  - ALANINE AMINOTRANSFERASE INCREASED [None]
  - ASPARTATE AMINOTRANSFERASE INCREASED [None]
  - HEPATITIS [None]
  - HEPATOCELLULAR DAMAGE [None]
